FAERS Safety Report 13586100 (Version 1)
Quarter: 2017Q2

REPORT INFORMATION
  Report Type: Spontaneous
  Country: IT (occurrence: IT)
  Receive Date: 20170526
  Receipt Date: 20170526
  Transmission Date: 20170830
  Serious: Yes (Other)
  Sender: FDA-Public Use
  Company Number: IT-APOTEX-2016AP008802

PATIENT
  Age: 30 Year
  Sex: Male

DRUGS (5)
  1. EVEROLIMUS [Interacting]
     Active Substance: EVEROLIMUS
     Indication: IMMUNOSUPPRESSANT DRUG THERAPY
     Dosage: 0.75MG DAILY REDUCED TO 0.50MG DAILY
     Route: 065
  2. ETHAMBUTOL [Interacting]
     Active Substance: ETHAMBUTOL HYDROCHLORIDE
     Indication: MYCOBACTERIUM CHELONAE INFECTION
     Dosage: 1200 MG, DAILY
     Route: 065
  3. CLARITROMICINA DOC GENERICI [Suspect]
     Active Substance: CLARITHROMYCIN
     Indication: MYCOBACTERIUM CHELONAE INFECTION
     Dosage: 1000 MG DAILY REDUCED TO 500MG DAILY
     Route: 065
  4. CICLOSPORIN [Interacting]
     Active Substance: CYCLOSPORINE
     Indication: IMMUNOSUPPRESSANT DRUG THERAPY
     Dosage: 100MG DAILY WHICH INCREASED TO INCREASED TO 225MG
     Route: 065
  5. RIFAMPICIN [Interacting]
     Active Substance: RIFAMPIN
     Indication: MYCOBACTERIUM CHELONAE INFECTION
     Dosage: 600MG DAILY
     Route: 065

REACTIONS (7)
  - Drug interaction [Recovered/Resolved]
  - Mycobacterium chelonae infection [Recovered/Resolved]
  - Aspartate aminotransferase increased [Recovered/Resolved]
  - Gamma-glutamyltransferase increased [Recovered/Resolved]
  - Nausea [Recovered/Resolved]
  - Drug level decreased [Recovered/Resolved]
  - Alanine aminotransferase increased [Recovered/Resolved]
